FAERS Safety Report 9708334 (Version 2)
Quarter: 2013Q4

REPORT INFORMATION
  Report Type: Spontaneous
  Country: US (occurrence: US)
  Receive Date: 20131125
  Receipt Date: 20131209
  Transmission Date: 20140711
  Serious: Yes (Hospitalization, Other)
  Sender: FDA-Public Use
  Company Number: US-TEVA-445645USA

PATIENT
  Sex: Male
  Weight: 94.43 kg

DRUGS (6)
  1. CLOZAPINE [Suspect]
     Indication: MENTAL DISORDER
     Dates: start: 2002
  2. CLOZAPINE [Suspect]
     Dates: start: 201307
  3. CLOZAPINE [Suspect]
     Dosage: ORAL DISINTIGRATING TABLETS
     Route: 048
  4. PRILOSEC [Suspect]
  5. RISPERIDONE [Concomitant]
     Indication: MENTAL DISORDER
     Route: 030
  6. VALPROATE SEMISODIUM [Concomitant]

REACTIONS (22)
  - Coma [Not Recovered/Not Resolved]
  - Paralysis [Not Recovered/Not Resolved]
  - Delirium [Not Recovered/Not Resolved]
  - Bedridden [Not Recovered/Not Resolved]
  - Pneumothorax [Unknown]
  - Pneumonia aspiration [Unknown]
  - Aphasia [Not Recovered/Not Resolved]
  - Aspiration [Recovered/Resolved]
  - Pneumonia [Not Recovered/Not Resolved]
  - Dysphagia [Unknown]
  - Hip fracture [Recovered/Resolved]
  - Leukocytosis [Not Recovered/Not Resolved]
  - Clostridium difficile infection [Not Recovered/Not Resolved]
  - Diarrhoea [Not Recovered/Not Resolved]
  - Escherichia infection [Not Recovered/Not Resolved]
  - Urinary tract infection [Not Recovered/Not Resolved]
  - Eye infection [Unknown]
  - Haematuria [Unknown]
  - Hypotension [Unknown]
  - Dehydration [Unknown]
  - Tachycardia [Unknown]
  - Oxygen saturation decreased [Unknown]
